FAERS Safety Report 4716548-6 (Version None)
Quarter: 2005Q3

REPORT INFORMATION
  Report Type: 
  Country: None (occurrence: None)
  Receive Date: 20050714
  Receipt Date: 20050629
  Transmission Date: 20060218
  Serious: Yes (Hospitalization)
  Sender: FDA-Public Use
  Company Number: 2005BI007391

PATIENT
  Age: 57 Year
  Sex: Female
  Weight: 86.1834 kg

DRUGS (8)
  1. AVONEX [Suspect]
     Indication: MULTIPLE SCLEROSIS
     Dosage: 30 UG; QW; IM
     Route: 030
     Dates: start: 20050217
  2. ZESTRIL [Concomitant]
  3. ZOLOFT [Concomitant]
  4. HYDROCHLOROTHIAZIDE [Concomitant]
  5. PREMARIN [Concomitant]
  6. EXCEDRIN (MIGRAINE) [Concomitant]
  7. EXCEDRIN (MIGRAINE) [Concomitant]
  8. SOMA [Concomitant]

REACTIONS (3)
  - CONDITION AGGRAVATED [None]
  - HOT FLUSH [None]
  - THYROID GLAND CANCER [None]
